FAERS Safety Report 9454879 (Version 1)
Quarter: 2013Q3

REPORT INFORMATION
  Report Type: Report from Study
  Country: BR (occurrence: BR)
  Receive Date: 20130813
  Receipt Date: 20130813
  Transmission Date: 20140515
  Serious: Yes (Death)
  Sender: FDA-Public Use
  Company Number: BR-ABBOTT-13P-020-1060384-00

PATIENT
  Age: 67 Year
  Sex: Female
  Weight: 64 kg

DRUGS (9)
  1. HUMIRA [Suspect]
     Indication: PSORIATIC ARTHROPATHY
     Route: 058
     Dates: start: 201211, end: 201301
  2. INSULIN [Concomitant]
     Indication: DIABETES MELLITUS
     Dosage: 35IU IN THE MORNING 15 IU IN THE EVENING
     Route: 058
     Dates: start: 2006
  3. LOSARTAN [Concomitant]
     Indication: HYPERTENSION
     Route: 048
     Dates: start: 2000
  4. HYDROCHLOROTHIAZIDE [Concomitant]
     Indication: HYPERTENSION
     Route: 048
     Dates: start: 2000
  5. CILOSTAZOL [Concomitant]
     Indication: LIMB DISCOMFORT
     Route: 048
     Dates: start: 201212
  6. AAS [Concomitant]
     Indication: THROMBOSIS PROPHYLAXIS
     Route: 048
     Dates: start: 2006
  7. AMLODIPINE [Concomitant]
     Indication: PRODUCT USED FOR UNKNOWN INDICATION
     Route: 048
  8. ANTILOPINA [Concomitant]
     Indication: PRODUCT USED FOR UNKNOWN INDICATION
     Route: 048
  9. CITALOPRAM [Concomitant]
     Indication: DEPRESSION
     Route: 048
     Dates: start: 201211

REACTIONS (3)
  - Psoriasis [Fatal]
  - Psoriasis [Fatal]
  - Wound [Not Recovered/Not Resolved]
